FAERS Safety Report 8602621-9 (Version None)
Quarter: 2012Q3

REPORT INFORMATION
  Report Type: 
  Country: None (occurrence: None)
  Receive Date: 20120817
  Receipt Date: 19950519
  Transmission Date: 20120928
  Serious: Yes (Other)
  Sender: FDA-Public Use
  Company Number: US-ROCHE-1101616

PATIENT
  Sex: Male

DRUGS (6)
  1. ACTIVASE [Suspect]
     Indication: ACUTE MYOCARDIAL INFARCTION
     Route: 042
  2. ACTIVASE [Suspect]
     Dosage: 35CC/HR
  3. INSULIN HUMULIN [Concomitant]
     Dosage: 50 UNITS
  4. ASPIRIN [Concomitant]
  5. ACTIVASE [Suspect]
     Dosage: 100CC/ML
  6. HEPARIN [Concomitant]
     Dosage: 7100 UNITS
     Route: 042

REACTIONS (7)
  - VENTRICULAR EXTRASYSTOLES [None]
  - SINUS TACHYCARDIA [None]
  - CARDIAC FLUTTER [None]
  - ANXIETY [None]
  - MUSCULOSKELETAL PAIN [None]
  - ELECTROCARDIOGRAM ST SEGMENT ELEVATION [None]
  - CHEST PAIN [None]
